FAERS Safety Report 6834520-7 (Version None)
Quarter: 2010Q3

REPORT INFORMATION
  Report Type: 
  Country: None (occurrence: None)
  Receive Date: 20100712
  Receipt Date: 20070803
  Transmission Date: 20110219
  Serious: No
  Sender: FDA-Public Use
  Company Number: US-PFIZER INC-2007022732

PATIENT
  Sex: Male
  Weight: 72.6 kg

DRUGS (5)
  1. CHANTIX [Suspect]
     Indication: SMOKING CESSATION THERAPY
     Route: 048
     Dates: start: 20061001, end: 20070208
  2. CHANTIX [Suspect]
     Indication: NICOTINE DEPENDENCE
  3. TEGRETOL [Concomitant]
     Indication: SCHIZOAFFECTIVE DISORDER
  4. LITHIUM [Concomitant]
     Indication: SCHIZOAFFECTIVE DISORDER
  5. ZYPREXA [Concomitant]
     Indication: SCHIZOAFFECTIVE DISORDER

REACTIONS (5)
  - ABNORMAL DREAMS [None]
  - CHEST DISCOMFORT [None]
  - CONSTIPATION [None]
  - FEELING ABNORMAL [None]
  - TOBACCO WITHDRAWAL SYMPTOMS [None]
